FAERS Safety Report 13442842 (Version 1)
Quarter: 2017Q2

REPORT INFORMATION
  Report Type: Other
  Country: GB (occurrence: NL)
  Receive Date: 20170414
  Receipt Date: 20170414
  Transmission Date: 20170830
  Serious: Yes (Life-Threatening, Hospitalization, Other)
  Sender: FDA-Public Use
  Company Number: NL-CLARIS PHARMASERVICES-1065379

PATIENT
  Age: 67 Year
  Sex: Male

DRUGS (2)
  1. NOREPINEPHRINE BITARTRATE. [Suspect]
     Active Substance: NOREPINEPHRINE BITARTRATE
     Indication: SPINAL SHOCK
     Route: 042
  2. PERINDOPRIL [Concomitant]
     Active Substance: PERINDOPRIL

REACTIONS (6)
  - Incorrect dose administered [Recovered/Resolved]
  - Syringe issue [None]
  - Overdose [Recovered/Resolved]
  - Hypertension [Recovered/Resolved]
  - Device malfunction [Recovered/Resolved]
  - Myocardial infarction [Recovered/Resolved]
